FAERS Safety Report 8852565 (Version 1)
Quarter: 2012Q4

REPORT INFORMATION
  Report Type: 
  Country: AR (occurrence: AR)
  Receive Date: 20121022
  Receipt Date: 20121022
  Transmission Date: 20130627
  Serious: Yes (Hospitalization, Other)
  Sender: FDA-Public Use
  Company Number: PHHY2012AR093415

PATIENT
  Sex: Male

DRUGS (1)
  1. ONBREZ [Suspect]
     Indication: RESPIRATORY DISORDER
     Dosage: UNK
     Dates: start: 201208

REACTIONS (1)
  - Respiratory failure [Recovering/Resolving]
